FAERS Safety Report 6242660-9 (Version None)
Quarter: 2009Q2

REPORT INFORMATION
  Report Type: 
  Country: None (occurrence: None)
  Receive Date: 20090617
  Receipt Date: 20080611
  Transmission Date: 20091009
  Serious: No
  Sender: FDA-Public Use
  Company Number: 276306

PATIENT
  Sex: Female

DRUGS (4)
  1. LEVEMIR [Suspect]
     Indication: INSULIN-REQUIRING TYPE 2 DIABETES MELLITUS
     Dosage: 5 IU, QD, SUBCUTANEOUS
     Route: 058
     Dates: start: 20080611
  2. BYETTA (EXENATIDE, EXENATIDE) [Concomitant]
  3. PRANDIN [Concomitant]
  4. METFORMIN HCL [Concomitant]

REACTIONS (2)
  - BACK PAIN [None]
  - BLOOD GLUCOSE INCREASED [None]
